FAERS Safety Report 25896821 (Version 2)
Quarter: 2025Q4

REPORT INFORMATION
  Report Type: Spontaneous
  Country: US (occurrence: US)
  Receive Date: 20251008
  Receipt Date: 20251201
  Transmission Date: 20260118
  Serious: No
  Sender: SANOFI AVENTIS
  Company Number: US-SA-2025SA297315

PATIENT
  Age: 82 Year
  Sex: Female

DRUGS (3)
  1. KEVZARA [Suspect]
     Active Substance: SARILUMAB
     Indication: Polymyalgia rheumatica
     Dosage: 200 MG, QOW
     Route: 058
     Dates: start: 202509
  2. PREDNISONE [Suspect]
     Active Substance: PREDNISONE
     Dosage: UNK
     Route: 065
     Dates: start: 202506
  3. PREDNISONE [Suspect]
     Active Substance: PREDNISONE
     Dosage: 1MG/DAY
     Route: 065
     Dates: start: 2025

REACTIONS (11)
  - Myalgia [Unknown]
  - Muscle swelling [Unknown]
  - Swelling face [Unknown]
  - Agitation [Unknown]
  - Weight increased [Unknown]
  - Muscle spasms [Unknown]
  - C-reactive protein increased [Unknown]
  - Diarrhoea [Unknown]
  - Headache [Unknown]
  - Arthralgia [Unknown]
  - Musculoskeletal stiffness [Unknown]

NARRATIVE: CASE EVENT DATE: 20250101
